FAERS Safety Report 19707000 (Version 3)
Quarter: 2021Q3

REPORT INFORMATION
  Report Type: Spontaneous
  Country: JP (occurrence: JP)
  Receive Date: 20210817
  Receipt Date: 20210927
  Transmission Date: 20211014
  Serious: No
  Sender: FDA-Public Use
  Company Number: JP-LUPIN PHARMACEUTICALS INC.-2021-14628

PATIENT
  Age: 34 Year
  Sex: Female

DRUGS (2)
  1. CALCIUM [Suspect]
     Active Substance: CALCIUM
     Indication: OSTEOPOROSIS
     Dosage: 800 MILLIGRAM, QD
     Route: 065
  2. SODIUM ALENDRONATE [Suspect]
     Active Substance: ALENDRONATE SODIUM
     Indication: OSTEOPOROSIS
     Dosage: UNK
     Route: 065

REACTIONS (2)
  - Exposure during pregnancy [Unknown]
  - Normal newborn [Unknown]
